FAERS Safety Report 20504968 (Version 6)
Quarter: 2022Q2

REPORT INFORMATION
  Report Type: Report from Study
  Country: JP (occurrence: JP)
  Receive Date: 20220223
  Receipt Date: 20220603
  Transmission Date: 20220721
  Serious: Yes (Hospitalization, Other)
  Sender: FDA-Public Use
  Company Number: JP-BRISTOL-MYERS SQUIBB COMPANY-BMS-2022-017471

PATIENT
  Age: 68 Year
  Sex: Male
  Weight: 98.9 kg

DRUGS (5)
  1. YERVOY [Suspect]
     Active Substance: IPILIMUMAB
     Indication: Non-small cell lung cancer recurrent
     Route: 041
     Dates: start: 20210416, end: 20210416
  2. OPDIVO [Suspect]
     Active Substance: NIVOLUMAB
     Indication: Non-small cell lung cancer recurrent
     Route: 041
     Dates: start: 20210416, end: 20211222
  3. CARBOPLATIN [Suspect]
     Active Substance: CARBOPLATIN
     Indication: Non-small cell lung cancer recurrent
     Route: 065
     Dates: start: 20210416, end: 20210507
  4. CARBOPLATIN [Suspect]
     Active Substance: CARBOPLATIN
     Route: 065
  5. PEMETREXED [Suspect]
     Active Substance: PEMETREXED
     Indication: Non-small cell lung cancer recurrent
     Route: 065
     Dates: start: 20210416, end: 20210507

REACTIONS (4)
  - Nausea [Recovered/Resolved]
  - Pneumonia bacterial [Recovered/Resolved]
  - Malignant neoplasm progression [Unknown]
  - Enteritis infectious [Recovered/Resolved]

NARRATIVE: CASE EVENT DATE: 20210420
